FAERS Safety Report 5747159-1 (Version None)
Quarter: 2008Q2

REPORT INFORMATION
  Report Type: 
  Country: None (occurrence: None)
  Receive Date: 20080520
  Receipt Date: 20080505
  Transmission Date: 20081010
  Serious: Yes (Hospitalization)
  Sender: FDA-Public Use
  Company Number: MPS1-1000031

PATIENT
  Age: 18 Year
  Sex: Male
  Weight: 38.3 kg

DRUGS (4)
  1. ALDURAZYME [Suspect]
     Indication: MUCOPOLYSACCHARIDOSIS I
     Dosage: 0.58 MG/KG, 1X/W, INTRAVENOUS
     Route: 042
     Dates: start: 20060911, end: 20080111
  2. COZAAR [Concomitant]
  3. ZANTAC [Concomitant]
  4. HYZAAR [Concomitant]

REACTIONS (6)
  - ANAEMIA HAEMOLYTIC AUTOIMMUNE [None]
  - BLOOD BILIRUBIN INCREASED [None]
  - BLOOD LACTATE DEHYDROGENASE INCREASED [None]
  - DIZZINESS [None]
  - HYPERTENSION [None]
  - WHITE BLOOD CELL COUNT INCREASED [None]
